FAERS Safety Report 4371487-8 (Version None)
Quarter: 2004Q2

REPORT INFORMATION
  Report Type: 
  Country: None (occurrence: None)
  Receive Date: 20040602
  Receipt Date: 20040520
  Transmission Date: 20050107
  Serious: Yes (Other)
  Sender: FDA-Public Use
  Company Number: 2004034100

PATIENT
  Sex: Female
  Weight: 56.6996 kg

DRUGS (4)
  1. ZOLOFT [Suspect]
     Indication: DEPRESSION
     Dosage: 50 MG (50 MG, 1 IN 1 D), ORAL
     Route: 048
  2. CIMICIFUGA RACEMOSA ROOT (CIMICIFUGA RACEMOSA ROOT) [Suspect]
     Indication: ILL-DEFINED DISORDER
     Dosage: UNK
  3. ALLERGY MEDICATION (ALLERGY MEDICATION) [Concomitant]
  4. MULTIVITAMINS (ASCORBIC ACID, ERGOCALCIFEROL, FOLIC ACID, NICOTINAMIDE [Concomitant]

REACTIONS (4)
  - DEPRESSION [None]
  - PHARMACEUTICAL PRODUCT COMPLAINT [None]
  - PRECANCEROUS CELLS PRESENT [None]
  - UTERINE DISORDER [None]
